FAERS Safety Report 5925519-3 (Version None)
Quarter: 2008Q4

REPORT INFORMATION
  Report Type: 
  Country: None (occurrence: None)
  Receive Date: 20081021
  Receipt Date: 20081015
  Transmission Date: 20090506
  Serious: Yes (Hospitalization, Other)
  Sender: FDA-Public Use
  Company Number: PHBS2008US06047

PATIENT
  Age: 30 Year
  Sex: Female

DRUGS (11)
  1. CYCLOSPORINE [Suspect]
     Indication: LUNG TRANSPLANT
     Dosage: UNK
  2. MYCOPHENOLATE MOFETIL [Concomitant]
  3. PREDNISONE TAB [Concomitant]
  4. INSULIN [Concomitant]
  5. FLUCONAZOLE [Concomitant]
  6. GANCICLOVIR [Concomitant]
  7. SULFAMETHOXAZOLE AND TRIMETHOPRIM [Concomitant]
  8. ATENOLOL [Concomitant]
  9. CLONIDINE [Concomitant]
  10. DIGESTIVE ENZYMES [Concomitant]
  11. ANTIBIOTICS [Concomitant]

REACTIONS (12)
  - ABDOMINAL PAIN UPPER [None]
  - BILE DUCT CANCER [None]
  - BILE DUCT STENOSIS [None]
  - BILIARY DILATATION [None]
  - CERVIX CARCINOMA STAGE 0 [None]
  - HELICOBACTER INFECTION [None]
  - HEPATIC MASS [None]
  - HYPERTENSION [None]
  - LUNG TRANSPLANT REJECTION [None]
  - LYMPHADENOPATHY [None]
  - TYPE 2 DIABETES MELLITUS [None]
  - VAGINAL CANCER STAGE 0 [None]
